FAERS Safety Report 5982551-1 (Version None)
Quarter: 2008Q4

REPORT INFORMATION
  Report Type: 
  Country: None (occurrence: None)
  Receive Date: 20081208
  Receipt Date: 20081126
  Transmission Date: 20090506
  Serious: Yes (Other)
  Sender: FDA-Public Use
  Company Number: PHHY2008JP25797

PATIENT
  Sex: Female
  Weight: 39 kg

DRUGS (7)
  1. LOCHOL [Suspect]
     Indication: HYPERLIPIDAEMIA
     Dosage: 30 MG/DAY
     Route: 048
     Dates: start: 20020208, end: 20081106
  2. PROSNER [Suspect]
     Indication: ARTERIAL OCCLUSIVE DISEASE
     Dosage: 80 MG
     Route: 048
     Dates: start: 20020204, end: 20081021
  3. LIPIDIL [Concomitant]
     Indication: HYPERLIPIDAEMIA
     Dosage: 100 DF
     Route: 048
     Dates: start: 20050401, end: 20081106
  4. ASPIRIN [Suspect]
     Indication: ARTERIAL OCCLUSIVE DISEASE
     Dosage: 100 MG
     Route: 048
     Dates: start: 20030905
  5. ACTONEL [Concomitant]
     Dosage: 17.5 DF
     Route: 048
     Dates: start: 20061110
  6. LUVOX [Concomitant]
     Indication: DEPRESSION
     Dosage: 25 DF
     Route: 048
     Dates: start: 20060113
  7. BUP-4 [Concomitant]
     Indication: POLLAKIURIA
     Dosage: 10 MG/DAY
     Dates: start: 20040121

REACTIONS (6)
  - CHEST X-RAY ABNORMAL [None]
  - CREPITATIONS [None]
  - DYSPNOEA EXERTIONAL [None]
  - INTERSTITIAL LUNG DISEASE [None]
  - PALPITATIONS [None]
  - PRODUCTIVE COUGH [None]
